FAERS Safety Report 9209248 (Version 1)
Quarter: 2013Q2

REPORT INFORMATION
  Report Type: Spontaneous
  Country: GB (occurrence: GB)
  Receive Date: 20130404
  Receipt Date: 20130404
  Transmission Date: 20140414
  Serious: Yes (Hospitalization)
  Sender: FDA-Public Use
  Company Number: GB-BANPHARM-20131114

PATIENT
  Age: 34 Year
  Sex: Male

DRUGS (2)
  1. IBUPROFEN UNKNOWN PRODUCT [Suspect]
     Indication: BACK PAIN
     Dosage: 400 MG, PRN,
     Route: 048
     Dates: start: 2000, end: 200510
  2. PARACETAMOL [Concomitant]
     Indication: BACK PAIN
     Dosage: 1000 MG PRN,
     Dates: start: 2000

REACTIONS (1)
  - Peptic ulcer haemorrhage [Recovering/Resolving]
